FAERS Safety Report 8607518-6 (Version None)
Quarter: 2012Q3

REPORT INFORMATION
  Report Type: 
  Country: None (occurrence: None)
  Receive Date: 20120821
  Receipt Date: 20120816
  Transmission Date: 20120928
  Serious: Yes (Life-Threatening, Hospitalization)
  Sender: FDA-Public Use
  Company Number: US-JNJFOC-20120709494

PATIENT
  Age: 57 Year
  Sex: Female
  Weight: 53.52 kg

DRUGS (3)
  1. MULTI-VITAMINS [Concomitant]
     Indication: ROUTINE HEALTH MAINTENANCE
     Dosage: 1 YEAR
     Route: 065
  2. ZINC SULFATE [Concomitant]
     Indication: ROUTINE HEALTH MAINTENANCE
     Dosage: 6 MONTHS
     Route: 065
  3. EXTRA STRENGTH TYLENOL [Suspect]
     Indication: MIGRAINE
     Dosage: 2 GELCAPS AROUND 5 TO 6AM AND 2 GELCAPS AT 6PM AND AROUND 7PM
     Route: 048
     Dates: start: 20101016, end: 20101016

REACTIONS (7)
  - RENAL IMPAIRMENT [None]
  - HEPATIC FAILURE [None]
  - ABASIA [None]
  - TOXICITY TO VARIOUS AGENTS [None]
  - AMNESIA [None]
  - COLD SWEAT [None]
  - DIZZINESS [None]
